FAERS Safety Report 15335320 (Version 7)
Quarter: 2020Q1

REPORT INFORMATION
  Report Type: Spontaneous
  Country: FR (occurrence: FR)
  Receive Date: 20180830
  Receipt Date: 20200214
  Transmission Date: 20200409
  Serious: Yes (Death, Congenital Anomaly, Other)
  Sender: FDA-Public Use
  Company Number: PHHY2009FR075292

PATIENT
  Sex: Female

DRUGS (11)
  1. EFAVIRENZ. [Suspect]
     Active Substance: EFAVIRENZ
     Indication: FOETAL EXPOSURE DURING PREGNANCY
     Dosage: (MOTHER DOSE :600 MG, QD)
     Route: 064
     Dates: start: 20050523, end: 20050908
  2. NEVIRAPINE. [Suspect]
     Active Substance: NEVIRAPINE
     Indication: FOETAL EXPOSURE DURING PREGNANCY
     Dosage: (MOTHER DOSE : 400 MG, 1D)
     Route: 064
     Dates: start: 20050704
  3. KALETRA [Suspect]
     Active Substance: LOPINAVIR\RITONAVIR
     Indication: FOETAL EXPOSURE DURING PREGNANCY
     Dosage: (MOTHER DOSE :UNK)
     Route: 064
     Dates: start: 20050908
  4. EMTRIVA [Suspect]
     Active Substance: EMTRICITABINE
     Dosage: UNK
     Route: 064
     Dates: start: 20050523
  5. COMBIVIR [Suspect]
     Active Substance: LAMIVUDINE\ZIDOVUDINE
     Indication: FOETAL EXPOSURE DURING PREGNANCY
     Dosage: (MOTHER DOSE :200 MG, QD)
     Route: 064
     Dates: start: 20050908
  6. EMTRIVA [Suspect]
     Active Substance: EMTRICITABINE
     Dosage: (MOTHER DOSE: 600 MG, QD)
     Route: 064
     Dates: start: 20050523, end: 20050908
  7. ALUVIA [Suspect]
     Active Substance: LOPINAVIR\RITONAVIR
     Indication: FOETAL EXPOSURE DURING PREGNANCY
     Dosage: UNK (MOTHER DOSE)
     Route: 064
     Dates: start: 20050908
  8. ALUVIA [Suspect]
     Active Substance: LOPINAVIR\RITONAVIR
     Dosage: UNK UNK, Q3W
     Route: 064
  9. EMTRIVA [Suspect]
     Active Substance: EMTRICITABINE
     Indication: FOETAL EXPOSURE DURING PREGNANCY
     Dosage: (MOTHER DOSE : 200 MG, QD)
     Route: 064
     Dates: start: 20050523
  10. DIDANOSINE. [Suspect]
     Active Substance: DIDANOSINE
     Indication: FOETAL EXPOSURE DURING PREGNANCY
     Dosage: (MOTHER DOSE : UNK)
     Route: 064
     Dates: start: 20050523, end: 20050908
  11. COMBIVIR [Suspect]
     Active Substance: LAMIVUDINE\ZIDOVUDINE
     Dosage: (MOTHER DOSE : Q3W)
     Route: 064

REACTIONS (9)
  - Spinocerebellar disorder [Fatal]
  - Encephalocele [Unknown]
  - Congenital hydrocephalus [Unknown]
  - Anencephaly [Unknown]
  - Meningomyelocele [Unknown]
  - Foetal exposure during pregnancy [Recovered/Resolved]
  - Neural tube defect [Unknown]
  - Brain herniation [Fatal]
  - Spina bifida [Fatal]

NARRATIVE: CASE EVENT DATE: 20060216
